FAERS Safety Report 9752068 (Version 1)
Quarter: 2013Q4

REPORT INFORMATION
  Report Type: Spontaneous
  Country: ES (occurrence: None)
  Receive Date: 20131211
  Receipt Date: 20131211
  Transmission Date: 20140711
  Serious: Yes (Hospitalization)
  Sender: FDA-Public Use
  Company Number: ES-ALKEM-000434

PATIENT
  Age: 47 Year
  Sex: Male

DRUGS (3)
  1. LAMOTRIGINE (LAMOTRIGINE) [Suspect]
     Indication: PARTIAL SEIZURES
  2. PHENYTOIN(PHENYTOIN) [Suspect]
  3. CLOBAZAM [Concomitant]

REACTIONS (4)
  - Drug reaction with eosinophilia and systemic symptoms [None]
  - Hepatic failure [None]
  - Renal failure acute [None]
  - Nephritis [None]
